FAERS Safety Report 6308196-1 (Version None)
Quarter: 2009Q3

REPORT INFORMATION
  Report Type: 
  Country: None (occurrence: None)
  Receive Date: 20090813
  Receipt Date: 20090730
  Transmission Date: 20100115
  Serious: Yes (Hospitalization)
  Sender: FDA-Public Use
  Company Number: JP-PFIZER INC-2009249996

PATIENT
  Age: 35 Year

DRUGS (4)
  1. MIGLITOL [Suspect]
     Indication: TYPE 1 DIABETES MELLITUS
     Dosage: 50 MG, ALTERNATE DAY
     Route: 048
     Dates: start: 20090717, end: 20090722
  2. HUMALOG [Concomitant]
     Dosage: 18 IU, UNK
     Route: 058
  3. INSULIN DETEMIR [Concomitant]
     Dosage: 20 IU, UNK
     Route: 058
  4. GLYCORAN [Concomitant]
     Dosage: 750 MG, UNK
     Route: 048
     Dates: start: 20090722

REACTIONS (3)
  - DEHYDRATION [None]
  - DIARRHOEA [None]
  - HEPATIC FUNCTION ABNORMAL [None]
